FAERS Safety Report 4382180-X (Version None)
Quarter: 2004Q2

REPORT INFORMATION
  Report Type: 
  Country: None (occurrence: None)
  Receive Date: 20040618
  Receipt Date: 20040618
  Transmission Date: 20050107
  Serious: Yes (Other)
  Sender: FDA-Public Use
  Company Number: None

PATIENT
  Sex: Female
  Weight: 65.7716 kg

DRUGS (1)
  1. ZOLOFT [Suspect]
     Indication: PREMENSTRUAL SYNDROME
     Dosage: 25 MG DAY ORAL
     Route: 048

REACTIONS (4)
  - AGITATION [None]
  - DEPRESSION [None]
  - IMPAIRED WORK ABILITY [None]
  - TREMOR [None]
